FAERS Safety Report 7990596-5 (Version None)
Quarter: 2011Q4

REPORT INFORMATION
  Report Type: 
  Country: None (occurrence: None)
  Receive Date: 20111219
  Receipt Date: 20110527
  Transmission Date: 20120403
  Serious: No
  Sender: FDA-Public Use
  Company Number: US-ASTRAZENECA-2011SE33438

PATIENT

DRUGS (8)
  1. CRESTOR [Suspect]
     Route: 048
  2. METOPROLOL TARTRATE [Concomitant]
  3. NIACIN [Concomitant]
  4. LISINOPRIL [Concomitant]
  5. MULTI-VITAMIN [Concomitant]
  6. SIMVASTATIN [Concomitant]
  7. ASPIRIN [Concomitant]
  8. VITAMIN C [Concomitant]

REACTIONS (1)
  - LIPIDS ABNORMAL [None]
